FAERS Safety Report 9466857 (Version 1)
Quarter: 2013Q3

REPORT INFORMATION
  Report Type: Spontaneous
  Country: IT (occurrence: IT)
  Receive Date: 20130820
  Receipt Date: 20130820
  Transmission Date: 20140515
  Serious: Yes (Other)
  Sender: FDA-Public Use
  Company Number: IT-UCBSA-095228

PATIENT
  Sex: Female

DRUGS (7)
  1. ALENDRONIC ACID SODIUM SALT TRIHYDRATE/COLECALCIFEROL [Concomitant]
  2. CARDIOASPIRIN [Concomitant]
  3. ALENDRONIC ACID SODIUM SALT TRIHYDRATE/COLECALCIFEROL [Concomitant]
  4. CIMZIA [Suspect]
     Dosage: DOSE: UNKNOWN
  5. TOCILIZUMAB [Suspect]
     Dosage: DOSE: UNKNOWN
  6. METHOTREXATE SODIUM [Concomitant]
  7. LANSOPRAZOLE [Concomitant]

REACTIONS (1)
  - Skin reaction [Unknown]
